APPROVED DRUG PRODUCT: LEVETIRACETAM
Active Ingredient: LEVETIRACETAM
Strength: 750MG
Dosage Form/Route: TABLET;ORAL
Application: A090906 | Product #003
Applicant: LOTUS PHARMACEUTICAL CO LTD
Approved: Oct 31, 2016 | RLD: No | RS: No | Type: DISCN